FAERS Safety Report 11745355 (Version 1)
Quarter: 2015Q4

REPORT INFORMATION
  Report Type: Spontaneous
  Country: US (occurrence: US)
  Receive Date: 20151117
  Receipt Date: 20151117
  Transmission Date: 20160304
  Serious: Yes (Hospitalization, Other)
  Sender: FDA-Public Use
  Company Number: US-ABBVIE-15K-163-1499188-00

PATIENT
  Age: 35 Year
  Sex: Female
  Weight: 90.8 kg

DRUGS (6)
  1. COLESTIPOL HCL [Concomitant]
     Active Substance: COLESTIPOL HYDROCHLORIDE
     Indication: BOWEL MOVEMENT IRREGULARITY
  2. HUMIRA [Suspect]
     Active Substance: ADALIMUMAB
     Route: 058
     Dates: start: 2015
  3. HUMIRA [Suspect]
     Active Substance: ADALIMUMAB
     Indication: CROHN^S DISEASE
     Dosage: LOADING DOSE
     Route: 058
     Dates: start: 2014, end: 2014
  4. HUMIRA [Suspect]
     Active Substance: ADALIMUMAB
     Route: 058
     Dates: end: 201506
  5. HYDROCODONE [Concomitant]
     Active Substance: HYDROCODONE
     Indication: ABDOMINAL PAIN
  6. HUMIRA [Suspect]
     Active Substance: ADALIMUMAB
     Dosage: LOADING DOSE
     Route: 058

REACTIONS (7)
  - Hypophagia [Recovered/Resolved]
  - Gastroenteritis viral [Recovered/Resolved]
  - Abdominal pain [Recovered/Resolved]
  - Anaemia [Recovered/Resolved]
  - Crohn^s disease [Recovered/Resolved]
  - Benign neoplasm [Recovered/Resolved]
  - Bowel movement irregularity [Recovered/Resolved]

NARRATIVE: CASE EVENT DATE: 2014
